FAERS Safety Report 19129259 (Version 2)
Quarter: 2021Q2

REPORT INFORMATION
  Report Type: Spontaneous
  Country: AU (occurrence: AU)
  Receive Date: 20210413
  Receipt Date: 20210429
  Transmission Date: 20210717
  Serious: Yes (Other)
  Sender: FDA-Public Use
  Company Number: AU-GLAXOSMITHKLINE-AU2021079111

PATIENT
  Age: 50 Year
  Sex: Female

DRUGS (2)
  1. NUCALA [Suspect]
     Active Substance: MEPOLIZUMAB
     Indication: ASTHMA
     Dosage: 100 MG, Z (EVERY MONTH)
  2. NUCALA [Suspect]
     Active Substance: MEPOLIZUMAB
     Indication: ASTHMA
     Dosage: 100 MG, Z(EVERY MONTH)
     Dates: start: 201905, end: 202010

REACTIONS (7)
  - Urethral haemorrhage [Unknown]
  - Scratch [Unknown]
  - Haemorrhage [Unknown]
  - Urinary tract infection [Unknown]
  - Pruritus [Unknown]
  - Skin swelling [Unknown]
  - Condition aggravated [Not Recovered/Not Resolved]

NARRATIVE: CASE EVENT DATE: 202011
